FAERS Safety Report 6865705-1 (Version None)
Quarter: 2010Q3

REPORT INFORMATION
  Report Type: 
  Country: None (occurrence: None)
  Receive Date: 20100721
  Receipt Date: 20080505
  Transmission Date: 20110219
  Serious: No
  Sender: FDA-Public Use
  Company Number: US-PFIZER INC-2008038813

PATIENT
  Sex: Female
  Weight: 70.454 kg

DRUGS (10)
  1. CHANTIX [Suspect]
     Indication: SMOKING CESSATION THERAPY
     Dates: start: 20080301
  2. HYDROCODONE [Concomitant]
     Indication: PAIN
  3. HYDROCODONE [Concomitant]
     Indication: SURGERY
  4. FLEXERIL [Concomitant]
     Indication: BRONCHOSPASM
  5. SEROQUEL [Concomitant]
  6. GEODON [Concomitant]
  7. ATIVAN [Concomitant]
  8. INDERAL [Concomitant]
  9. TRAZODONE HYDROCHLORIDE [Concomitant]
  10. CELEXA [Concomitant]

REACTIONS (1)
  - FATIGUE [None]
